FAERS Safety Report 17754842 (Version 15)
Quarter: 2025Q3

REPORT INFORMATION
  Report Type: Report from Study
  Country: US (occurrence: US)
  Receive Date: 20200507
  Receipt Date: 20250901
  Transmission Date: 20251021
  Serious: Yes (Other)
  Sender: TAKEDA
  Company Number: US-SHIRE-US202015510

PATIENT
  Age: 82 Year
  Sex: Male
  Weight: 70 kg

DRUGS (49)
  1. HUMAN IMMUNOGLOBULIN G\HYALURONIDASE RECOMBINANT HUMAN [Suspect]
     Active Substance: HUMAN IMMUNOGLOBULIN G\HYALURONIDASE (HUMAN RECOMBINANT)
     Indication: Immunodeficiency common variable
     Dosage: 30 GRAM, Q4WEEKS
  2. HUMAN IMMUNOGLOBULIN G\HYALURONIDASE RECOMBINANT HUMAN [Suspect]
     Active Substance: HUMAN IMMUNOGLOBULIN G\HYALURONIDASE (HUMAN RECOMBINANT)
     Indication: IgG deficiency
     Dosage: 30 GRAM, Q4WEEKS
     Dates: start: 20160511
  3. HUMAN IMMUNOGLOBULIN G\HYALURONIDASE RECOMBINANT HUMAN [Suspect]
     Active Substance: HUMAN IMMUNOGLOBULIN G\HYALURONIDASE (HUMAN RECOMBINANT)
     Dosage: 30 GRAM, Q2WEEKS
  4. HUMAN IMMUNOGLOBULIN G\HYALURONIDASE RECOMBINANT HUMAN [Suspect]
     Active Substance: HUMAN IMMUNOGLOBULIN G\HYALURONIDASE (HUMAN RECOMBINANT)
  5. HUMAN IMMUNOGLOBULIN G\HYALURONIDASE RECOMBINANT HUMAN [Suspect]
     Active Substance: HUMAN IMMUNOGLOBULIN G\HYALURONIDASE (HUMAN RECOMBINANT)
     Dosage: 30 GRAM, Q5WEEKS
  6. HUMAN IMMUNOGLOBULIN G\HYALURONIDASE RECOMBINANT HUMAN [Suspect]
     Active Substance: HUMAN IMMUNOGLOBULIN G\HYALURONIDASE (HUMAN RECOMBINANT)
  7. HUMAN IMMUNOGLOBULIN G\HYALURONIDASE RECOMBINANT HUMAN [Suspect]
     Active Substance: HUMAN IMMUNOGLOBULIN G\HYALURONIDASE (HUMAN RECOMBINANT)
     Dosage: 35 GRAM, Q5WEEKS
  8. PREDNISONE [Suspect]
     Active Substance: PREDNISONE
     Indication: Product used for unknown indication
  9. ACETAMINOPHEN [Concomitant]
     Active Substance: ACETAMINOPHEN
  10. SPIRIVA [Concomitant]
     Active Substance: TIOTROPIUM BROMIDE MONOHYDRATE
  11. PROAIR HFA [Concomitant]
     Active Substance: ALBUTEROL SULFATE
  12. VALSARTAN [Concomitant]
     Active Substance: VALSARTAN
  13. SINGULAIR [Concomitant]
     Active Substance: MONTELUKAST SODIUM
  14. ROSUVASTATIN CALCIUM [Concomitant]
     Active Substance: ROSUVASTATIN CALCIUM
  15. CALCIUM 600 + D3 PLUS MINERALS [Concomitant]
  16. PEPCID [Concomitant]
     Active Substance: FAMOTIDINE
  17. Citracal + D3 [Concomitant]
  18. ALLOPURINOL [Concomitant]
     Active Substance: ALLOPURINOL
  19. LIDOCAINE [Concomitant]
     Active Substance: LIDOCAINE
  20. METOPROLOL SUCCINATE [Concomitant]
     Active Substance: METOPROLOL SUCCINATE
  21. VITAMIN B [Concomitant]
     Active Substance: VITAMIN B
  22. DIPHENHYDRAMINE HYDROCHLORIDE [Concomitant]
     Active Substance: DIPHENHYDRAMINE HYDROCHLORIDE
  23. AIMOVIG [Concomitant]
     Active Substance: ERENUMAB-AOOE
  24. OMEPRAZOLE [Concomitant]
     Active Substance: OMEPRAZOLE
  25. ASPIRIN [Concomitant]
     Active Substance: ASPIRIN
  26. SYMBICORT [Concomitant]
     Active Substance: BUDESONIDE\FORMOTEROL FUMARATE DIHYDRATE
  27. TRIAMCINOLONE ACETONIDE [Concomitant]
     Active Substance: TRIAMCINOLONE ACETONIDE
  28. TRAZODONE [Concomitant]
     Active Substance: TRAZODONE HYDROCHLORIDE
  29. DIPHENHYDRAMINE [Concomitant]
     Active Substance: DIPHENHYDRAMINE
  30. EPINEPHRINE [Concomitant]
     Active Substance: EPINEPHRINE
  31. PERCOCET [Concomitant]
     Active Substance: ACETAMINOPHEN\OXYCODONE HYDROCHLORIDE
  32. MIRALAX [Concomitant]
     Active Substance: POLYETHYLENE GLYCOL 3350
  33. PHENERGAN [Concomitant]
     Active Substance: PROMETHAZINE HYDROCHLORIDE
  34. SODIUM CHLORIDE [Concomitant]
     Active Substance: SODIUM CHLORIDE
  35. OSELTAMIVIR [Concomitant]
     Active Substance: OSELTAMIVIR
  36. PROVENTIL [Concomitant]
     Active Substance: ALBUTEROL
  37. PRAVASTATIN [Concomitant]
     Active Substance: PRAVASTATIN
  38. ZYRTEC [Concomitant]
     Active Substance: CETIRIZINE HYDROCHLORIDE
  39. VITAMIN B12 [Concomitant]
     Active Substance: CYANOCOBALAMIN
  40. SOMA [Concomitant]
     Active Substance: CARISOPRODOL
  41. BIAXIN [Concomitant]
     Active Substance: CLARITHROMYCIN
  42. CALCIUM [Concomitant]
     Active Substance: CALCIUM
  43. VOLTAREN [Concomitant]
     Active Substance: DICLOFENAC SODIUM
  44. TRAZODONE HCL [Concomitant]
     Active Substance: TRAZODONE HYDROCHLORIDE
  45. MINERALS\VITAMINS [Concomitant]
     Active Substance: MINERALS\VITAMINS
  46. EZETIMIBE [Concomitant]
     Active Substance: EZETIMIBE
  47. BREZTRI [Concomitant]
     Active Substance: BUDESONIDE\FORMOTEROL\GLYCOPYRROLATE
  48. VITAMIN D3 [Concomitant]
     Active Substance: CHOLECALCIFEROL
  49. AIRSUPRA [Concomitant]
     Active Substance: ALBUTEROL SULFATE\BUDESONIDE

REACTIONS (22)
  - Arrhythmia [Unknown]
  - Seizure [Unknown]
  - Creatinine renal clearance decreased [Unknown]
  - Rhinovirus infection [Unknown]
  - Gastroenteritis viral [Unknown]
  - Respiratory disorder [Unknown]
  - Ventricular extrasystoles [Unknown]
  - Dysphagia [Unknown]
  - Illness [Unknown]
  - Bronchitis [Not Recovered/Not Resolved]
  - Upper respiratory tract infection [Unknown]
  - COVID-19 [Unknown]
  - Nasopharyngitis [Unknown]
  - Blood pressure abnormal [Unknown]
  - Inappropriate schedule of product administration [Unknown]
  - Incorrect drug administration rate [Unknown]
  - Seasonal allergy [Unknown]
  - Asthma [Unknown]
  - Hypertension [Unknown]
  - Blood pressure increased [Unknown]
  - Tremor [Unknown]
  - Chills [Unknown]

NARRATIVE: CASE EVENT DATE: 20221225
